FAERS Safety Report 13424008 (Version 1)
Quarter: 2017Q2

REPORT INFORMATION
  Report Type: Spontaneous
  Country: None (occurrence: US)
  Receive Date: 20170410
  Receipt Date: 20170410
  Transmission Date: 20170830
  Serious: No
  Sender: FDA-Public Use
  Company Number: US-MEDAC PHARMA, INC.-1065230

PATIENT
  Age: 66 Year
  Sex: Female

DRUGS (1)
  1. RASUVO [Suspect]
     Active Substance: METHOTREXATE SODIUM

REACTIONS (4)
  - Accidental exposure to product [Recovered/Resolved]
  - Device issue [Recovered/Resolved]
  - No adverse event [None]
  - Exposure via skin contact [Recovered/Resolved]
